FAERS Safety Report 10102758 (Version 2)
Quarter: 2014Q4

REPORT INFORMATION
  Report Type: Other
  Country: US (occurrence: US)
  Receive Date: 20140424
  Receipt Date: 20141031
  Transmission Date: 20150528
  Serious: Yes (Hospitalization, Other)
  Sender: FDA-Public Use
  Company Number: US-GSKPPD-2014GSK000415

PATIENT
  Age: 50 Year
  Sex: Male
  Weight: 98.5 kg

DRUGS (9)
  1. AVANDAMET [Suspect]
     Active Substance: METFORMIN HYDROCHLORIDE\ROSIGLITAZONE MALEATE
     Indication: DIABETES MELLITUS
     Dosage: 4MG-1000MG
     Route: 048
     Dates: start: 20060810, end: 20070415
  2. ASPIRIN. [Concomitant]
     Active Substance: ASPIRIN
     Route: 048
  3. ZESTRIL [Concomitant]
     Active Substance: LISINOPRIL
     Route: 048
  4. AVANDIA [Suspect]
     Active Substance: ROSIGLITAZONE MALEATE
     Indication: DIABETES MELLITUS
     Route: 048
     Dates: start: 20060227, end: 20060810
  5. AVANDAMET [Suspect]
     Active Substance: METFORMIN HYDROCHLORIDE\ROSIGLITAZONE MALEATE
     Indication: DIABETES MELLITUS
     Dosage: 4MG-1000MG
     Route: 048
     Dates: start: 20051027, end: 20060227
  6. PLAVIX [Concomitant]
     Active Substance: CLOPIDOGREL BISULFATE
     Route: 048
  7. LIPITOR [Concomitant]
     Active Substance: ATORVASTATIN CALCIUM
     Route: 048
  8. ATENOLOL. [Concomitant]
     Active Substance: ATENOLOL
     Route: 048
  9. ALTACE [Concomitant]
     Active Substance: RAMIPRIL
     Route: 048

REACTIONS (1)
  - Acute myocardial infarction [Recovered/Resolved]

NARRATIVE: CASE EVENT DATE: 20060524
